FAERS Safety Report 12172150 (Version 1)
Quarter: 2016Q1

REPORT INFORMATION
  Report Type: Spontaneous
  Country: CA (occurrence: CA)
  Receive Date: 20160311
  Receipt Date: 20160311
  Transmission Date: 20160526
  Serious: Yes (Other)
  Sender: FDA-Public Use
  Company Number: CA-ACTELION-A-US2016-132491

PATIENT
  Age: 69 Year
  Sex: Male

DRUGS (15)
  1. OXYGEN. [Concomitant]
     Active Substance: OXYGEN
  2. ASA [Concomitant]
     Active Substance: ASPIRIN
  3. GABAPENTIN. [Concomitant]
     Active Substance: GABAPENTIN
  4. JANUVIA [Concomitant]
     Active Substance: SITAGLIPTIN PHOSPHATE
  5. FUROSEMIDE. [Concomitant]
     Active Substance: FUROSEMIDE
  6. VITAMIN D [Concomitant]
     Active Substance: CHOLECALCIFEROL
  7. ADALAT CC [Concomitant]
     Active Substance: NIFEDIPINE
  8. COQ10 [Concomitant]
     Active Substance: UBIDECARENONE
  9. PANTOPRAZOLE [Concomitant]
     Active Substance: PANTOPRAZOLE SODIUM
  10. SPIRONOLACTONE. [Concomitant]
     Active Substance: SPIRONOLACTONE
  11. ULORIC [Concomitant]
     Active Substance: FEBUXOSTAT
  12. OPSUMIT [Suspect]
     Active Substance: MACITENTAN
     Indication: PULMONARY HYPERTENSION
     Dosage: 10 MG, UNK
     Route: 048
  13. EZETROL [Concomitant]
     Active Substance: EZETIMIBE
  14. GLUMETZA [Concomitant]
     Active Substance: METFORMIN HYDROCHLORIDE
  15. NIASPAN [Concomitant]
     Active Substance: NIACIN

REACTIONS (3)
  - Asthenia [Unknown]
  - Blood potassium decreased [Unknown]
  - Mood altered [Unknown]
